FAERS Safety Report 19845282 (Version 3)
Quarter: 2022Q3

REPORT INFORMATION
  Report Type: Spontaneous
  Country: US (occurrence: US)
  Receive Date: 20210917
  Receipt Date: 20211115
  Transmission Date: 20221027
  Serious: Yes (Other)
  Sender: FDA-Public Use
  Company Number: US-HTU-2021US022800

PATIENT
  Sex: Female

DRUGS (5)
  1. VALCHLOR [Suspect]
     Active Substance: MECHLORETHAMINE
     Indication: Cutaneous T-cell lymphoma
     Dosage: THIN FILM,  3-5/WEEK
     Route: 061
     Dates: start: 20210605, end: 20211004
  2. VALCHLOR [Suspect]
     Active Substance: MECHLORETHAMINE
     Dosage: THIN FILM, 3/WEEK
     Route: 061
     Dates: start: 20211012
  3. TRIAMCINOLONE [Suspect]
     Active Substance: TRIAMCINOLONE
     Indication: Cutaneous T-cell lymphoma
     Dosage: UNK, QD IN THE MORNING
     Route: 061
  4. METHOTREXATE [Concomitant]
     Active Substance: METHOTREXATE
     Indication: Cutaneous T-cell lymphoma
     Dosage: 8 TABLETS, 1/WEEK WITH A MEAL
     Route: 048
  5. METHOTREXATE [Concomitant]
     Active Substance: METHOTREXATE
     Dosage: UNK, QD
     Route: 048

REACTIONS (13)
  - Application site cellulitis [Recovered/Resolved]
  - Application site pain [Not Recovered/Not Resolved]
  - Sleep disorder due to a general medical condition [Not Recovered/Not Resolved]
  - Application site nodule [Recovering/Resolving]
  - Condition aggravated [Not Recovered/Not Resolved]
  - Application site discolouration [Not Recovered/Not Resolved]
  - Sensitive skin [Not Recovered/Not Resolved]
  - Off label use [Not Recovered/Not Resolved]
  - Intentional dose omission [Recovered/Resolved]
  - Skin fissures [Unknown]
  - Intentional product use issue [Unknown]
  - Application site swelling [Recovering/Resolving]
  - Application site erythema [Not Recovered/Not Resolved]

NARRATIVE: CASE EVENT DATE: 20210101
